FAERS Safety Report 22603069 (Version 2)
Quarter: 2023Q2

REPORT INFORMATION
  Report Type: Spontaneous
  Country: CZ (occurrence: CZ)
  Receive Date: 20230615
  Receipt Date: 20230627
  Transmission Date: 20230722
  Serious: Yes (Other)
  Sender: FDA-Public Use
  Company Number: CZ-002147023-NVSC2023CZ121406

PATIENT
  Sex: Female

DRUGS (2)
  1. AIMOVIG [Suspect]
     Active Substance: ERENUMAB-AOOE
     Indication: Migraine
     Dosage: 140 MG, FOR THREE MONTHS (TOOK THE FIRST THREE DOSES)
     Route: 058
     Dates: start: 20230227
  2. MAGNESIUM [Concomitant]
     Active Substance: MAGNESIUM
     Indication: Product used for unknown indication
     Dosage: UNK
     Route: 065

REACTIONS (7)
  - Anxiety [Recovered/Resolved]
  - Incontinence [Recovered/Resolved]
  - Alopecia [Recovered/Resolved]
  - Anxiety [Unknown]
  - Incontinence [Unknown]
  - Alopecia [Unknown]
  - Drug ineffective [Unknown]
